FAERS Safety Report 12050022 (Version 1)
Quarter: 2016Q1

REPORT INFORMATION
  Report Type: Report from Study
  Country: US (occurrence: US)
  Receive Date: 20160209
  Receipt Date: 20160209
  Transmission Date: 20160526
  Serious: No
  Sender: FDA-Public Use
  Company Number: US-ABBVIE-15P-163-1425953-00

PATIENT
  Age: 45 Year
  Sex: Female

DRUGS (3)
  1. HUMIRA [Suspect]
     Active Substance: ADALIMUMAB
     Indication: PSORIASIS
     Dosage: FIRST INJECION
     Route: 065
     Dates: start: 20150616, end: 20150616
  2. HUMIRA [Suspect]
     Active Substance: ADALIMUMAB
     Dosage: SECOND INJECTION
     Route: 065
     Dates: start: 20150623, end: 20150623
  3. HUMIRA [Suspect]
     Active Substance: ADALIMUMAB
     Dosage: THIRD INJECTION
     Route: 065
     Dates: start: 20150709

REACTIONS (1)
  - Inappropriate schedule of drug administration [Recovered/Resolved]

NARRATIVE: CASE EVENT DATE: 20150707
